FAERS Safety Report 19710718 (Version 1)
Quarter: 2021Q3

REPORT INFORMATION
  Report Type: Spontaneous
  Country: AL (occurrence: AL)
  Receive Date: 20210817
  Receipt Date: 20210817
  Transmission Date: 20211014
  Serious: Yes (Other)
  Sender: FDA-Public Use
  Company Number: AL-CORDEN PHARMA LATINA S.P.A.-AL-2021COR000016

PATIENT

DRUGS (1)
  1. LOMUSTINE. [Suspect]
     Active Substance: LOMUSTINE
     Indication: GLIOMA
     Dosage: UNK
     Route: 048

REACTIONS (1)
  - Neutropenia [Unknown]
